FAERS Safety Report 16996899 (Version 3)
Quarter: 2019Q4

REPORT INFORMATION
  Report Type: Report from Study
  Country: US (occurrence: US)
  Receive Date: 20191105
  Receipt Date: 20191127
  Transmission Date: 20200122
  Serious: Yes (Hospitalization)
  Sender: FDA-Public Use
  Company Number: US-EXELIXIS-CABO-19023658

PATIENT
  Age: 60 Year
  Sex: Female

DRUGS (3)
  1. CABOMETYX [Suspect]
     Active Substance: CABOZANTINIB S-MALATE
     Dosage: 40 MG, QD (WITHOUT FOOD)
     Dates: start: 201910, end: 20191112
  2. CABOMETYX [Suspect]
     Active Substance: CABOZANTINIB S-MALATE
     Dosage: 40 MG, QD (WITHOUT FOOD)
     Dates: start: 201909, end: 201910
  3. CABOMETYX [Suspect]
     Active Substance: CABOZANTINIB S-MALATE
     Indication: RENAL CELL CARCINOMA
     Dosage: 40 MG, QD (WITHOUT FOOD)
     Dates: start: 20190903, end: 201909

REACTIONS (25)
  - Pyrexia [Unknown]
  - Glossodynia [Recovering/Resolving]
  - Constipation [Recovered/Resolved]
  - Acne [Recovering/Resolving]
  - Skin ulcer [Unknown]
  - Fatigue [Recovering/Resolving]
  - Myoclonus [Recovered/Resolved]
  - Loss of consciousness [Recovered/Resolved]
  - Urinary tract disorder [Unknown]
  - Abdominal discomfort [Not Recovered/Not Resolved]
  - Palpitations [Not Recovered/Not Resolved]
  - Back pain [Unknown]
  - Rash [Not Recovered/Not Resolved]
  - Hypertension [Recovered/Resolved]
  - Cancer pain [Unknown]
  - Product dose omission [Unknown]
  - Hyperhidrosis [Unknown]
  - Dizziness [Recovered/Resolved]
  - Hypoaesthesia oral [Recovered/Resolved]
  - Diarrhoea [Unknown]
  - Blepharospasm [Recovered/Resolved]
  - Cardiac failure [Unknown]
  - Flatulence [Not Recovered/Not Resolved]
  - Blister [Unknown]
  - Dyspnoea [Not Recovered/Not Resolved]

NARRATIVE: CASE EVENT DATE: 201909
